FAERS Safety Report 20344404 (Version 1)
Quarter: 2022Q1

REPORT INFORMATION
  Report Type: Spontaneous
  Country: US (occurrence: US)
  Receive Date: 20220118
  Receipt Date: 20220118
  Transmission Date: 20220423
  Serious: No
  Sender: FDA-Public Use
  Company Number: US-ORGANON-O2201USA000884

PATIENT
  Age: 27 Year
  Sex: Female

DRUGS (1)
  1. NEXPLANON [Suspect]
     Active Substance: ETONOGESTREL
     Dosage: 1 IMPLANT FOR LEFT UPPER ARM
     Route: 059
     Dates: start: 201812, end: 20211228

REACTIONS (2)
  - Complication of device removal [Recovered/Resolved]
  - Device issue [Recovered/Resolved]

NARRATIVE: CASE EVENT DATE: 20211202
